FAERS Safety Report 16624646 (Version 1)
Quarter: 2019Q3

REPORT INFORMATION
  Report Type: Spontaneous
  Country: US (occurrence: US)
  Receive Date: 20190723
  Receipt Date: 20190723
  Transmission Date: 20191004
  Serious: No
  Sender: FDA-Public Use
  Company Number: None

PATIENT
  Age: 17 Year
  Sex: Male
  Weight: 71.1 kg

DRUGS (2)
  1. CHILDTENS MULTIVITAMIN [Concomitant]
  2. IMIQUIMOD CREAM 5% [Suspect]
     Active Substance: IMIQUIMOD
     Indication: PYOGENIC GRANULOMA
     Dosage: ?          QUANTITY:1 PACKET;?
     Route: 061
     Dates: start: 20190715, end: 20190719

REACTIONS (4)
  - Cheilitis [None]
  - Lip swelling [None]
  - Oral discomfort [None]
  - Therapy non-responder [None]

NARRATIVE: CASE EVENT DATE: 20190720
